FAERS Safety Report 12784316 (Version 1)
Quarter: 2016Q3

REPORT INFORMATION
  Report Type: Spontaneous
  Country: DE (occurrence: DE)
  Receive Date: 20160927
  Receipt Date: 20160927
  Transmission Date: 20161109
  Serious: Yes (Other)
  Sender: FDA-Public Use
  Company Number: DE-BEH-2009020298

PATIENT
  Age: 62 Year
  Sex: Male
  Weight: 110 kg

DRUGS (4)
  1. SANDOGLOBULIN [Suspect]
     Active Substance: HUMAN IMMUNOGLOBULIN G
     Indication: MILLER FISHER SYNDROME
     Dosage: 3 TIMES 10 G
  2. BELOC [Concomitant]
     Active Substance: METOPROLOL TARTRATE
     Dosage: 2 TIMES DAILY
  3. ASS RATIOPHARM [Concomitant]
     Active Substance: ASPIRIN
  4. KIOVIG [Suspect]
     Active Substance: HUMAN IMMUNOGLOBULIN G
     Indication: MILLER FISHER SYNDROME
     Dosage: 7 TIMES 10 G, 3 TIMES 5 G, 2 TIMES 5 G

REACTIONS (2)
  - Leukopenia [Unknown]
  - Neutropenia [Unknown]

NARRATIVE: CASE EVENT DATE: 20090531
